FAERS Safety Report 17261420 (Version 1)
Quarter: 2019Q4

REPORT INFORMATION
  Report Type: Spontaneous
  Country: US (occurrence: US)
  Receive Date: 20191217
  Receipt Date: 20191217
  Transmission Date: 20200122
  Serious: Yes (Other)
  Sender: FDA-Public Use
  Company Number: None

PATIENT
  Age: 10 Year
  Sex: Male
  Weight: 39.92 kg

DRUGS (2)
  1. LEVETIRACETAM 500MG [Suspect]
     Active Substance: LEVETIRACETAM
     Indication: SEIZURE
     Dosage: ?          OTHER FREQUENCY:Q AM;?
     Route: 048
     Dates: start: 20190720
  2. LEVETIRACETAM 500MG TAB [Suspect]
     Active Substance: LEVETIRACETAM
     Route: 048
     Dates: start: 20190927

REACTIONS (1)
  - Headache [None]
